FAERS Safety Report 11711767 (Version 1)
Quarter: 2015Q4

REPORT INFORMATION
  Report Type: Spontaneous
  Country: US (occurrence: US)
  Receive Date: 20151104
  Receipt Date: 20151104
  Transmission Date: 20160304
  Serious: No
  Sender: FDA-Public Use
  Company Number: US-ELI_LILLY_AND_COMPANY-US201106003094

PATIENT
  Age: 68 Year
  Sex: Female

DRUGS (1)
  1. FORTEO [Suspect]
     Active Substance: TERIPARATIDE
     Indication: OSTEOPENIA
     Dosage: 20 UG, QD
     Dates: start: 20110511

REACTIONS (9)
  - Weight increased [Unknown]
  - Asthenia [Unknown]
  - Mobility decreased [Unknown]
  - Overdose [Unknown]
  - Fall [Unknown]
  - Body height decreased [Unknown]
  - Injury [Unknown]
  - Arthralgia [Unknown]
  - Off label use [Not Recovered/Not Resolved]

NARRATIVE: CASE EVENT DATE: 20110511
